FAERS Safety Report 9235922 (Version 1)
Quarter: 2013Q2

REPORT INFORMATION
  Report Type: Report from Study
  Country: CA (occurrence: CA)
  Receive Date: 20130417
  Receipt Date: 20130417
  Transmission Date: 20140414
  Serious: Yes (Other)
  Sender: FDA-Public Use
  Company Number: CA-UCBSA-083224

PATIENT
  Age: 60 Year
  Sex: Female
  Weight: 41 kg

DRUGS (10)
  1. CIMZIA [Suspect]
     Indication: RHEUMATOID ARTHRITIS
     Route: 058
     Dates: start: 20100810
  2. CIMZIA [Suspect]
     Indication: RHEUMATOID ARTHRITIS
     Route: 058
  3. CIMZIA [Suspect]
     Indication: RHEUMATOID ARTHRITIS
     Route: 058
     Dates: start: 20100629, end: 20100727
  4. PLAQUENIL [Concomitant]
  5. RAMIPRIL [Concomitant]
  6. ATENOLOL [Concomitant]
  7. ADALAT [Concomitant]
  8. CALCIUM WITH VITAMIN D [Concomitant]
     Route: 048
  9. DILANTIN [Concomitant]
     Route: 048
  10. DILANTIN [Concomitant]
     Route: 048

REACTIONS (1)
  - Grand mal convulsion [Not Recovered/Not Resolved]
